FAERS Safety Report 6493802-1 (Version None)
Quarter: 2009Q4

REPORT INFORMATION
  Report Type: 
  Country: None (occurrence: None)
  Receive Date: 20091214
  Receipt Date: 20081120
  Transmission Date: 20100525
  Serious: No
  Sender: FDA-Public Use
  Company Number: US-BRISTOL-MYERS SQUIBB COMPANY-14395131

PATIENT
  Age: 39 Year
  Sex: Female

DRUGS (4)
  1. ABILIFY [Suspect]
     Indication: DEPRESSION
     Dosage: ABILIFY 5MG-1/2 TAB HS
     Route: 048
     Dates: start: 20081023, end: 20081103
  2. WELLBUTRIN XL [Suspect]
     Dates: start: 20080921
  3. XANAX [Suspect]
     Dosage: 1 DOSAGE FORM=.25(UNITS NOT SPECIFIED)
     Dates: start: 20080930
  4. ANTIDEPRESSANT [Concomitant]

REACTIONS (1)
  - CONFUSIONAL STATE [None]
